FAERS Safety Report 5463198-2 (Version None)
Quarter: 2007Q3

REPORT INFORMATION
  Report Type: 
  Country: None (occurrence: None)
  Receive Date: 20070920
  Receipt Date: 20070917
  Transmission Date: 20080115
  Serious: Yes (Other)
  Sender: FDA-Public Use
  Company Number: A0683056A

PATIENT
  Age: 16 Year
  Sex: Male

DRUGS (3)
  1. LAMICTAL [Suspect]
     Indication: EPILEPSY
     Dosage: 25MG TWICE PER DAY
     Route: 048
     Dates: start: 20070803, end: 20070903
  2. TEGRETOL [Suspect]
     Indication: EPILEPSY
     Dosage: 400MG THREE TIMES PER DAY
     Route: 048
  3. DIVALPROEX SODIUM [Concomitant]
     Dosage: 500MG TWICE PER DAY
     Route: 048

REACTIONS (2)
  - CONVULSION [None]
  - DRUG INEFFECTIVE [None]
